FAERS Safety Report 7512382-2 (Version None)
Quarter: 2011Q2

REPORT INFORMATION
  Report Type: 
  Country: None (occurrence: None)
  Receive Date: 20110520
  Receipt Date: 20110516
  Transmission Date: 20111010
  Serious: Yes (Other)
  Sender: FDA-Public Use
  Company Number: AXC-2011-000221

PATIENT
  Age: 22 Year
  Sex: Male

DRUGS (2)
  1. URSODIOL [Suspect]
     Indication: HEPATIC STEATOSIS
     Dosage: 600 MG, QD, ORAL, 900 MG, QD, ORAL
     Route: 048
     Dates: start: 20110429, end: 20110507
  2. URSODIOL [Suspect]
     Indication: HEPATIC STEATOSIS
     Dosage: 600 MG, QD, ORAL, 900 MG, QD, ORAL
     Route: 048
     Dates: start: 20110309

REACTIONS (1)
  - ENTEROCOLITIS [None]
